FAERS Safety Report 15992463 (Version 4)
Quarter: 2020Q1

REPORT INFORMATION
  Report Type: Spontaneous
  Country: US (occurrence: US)
  Receive Date: 20190221
  Receipt Date: 20200325
  Transmission Date: 20200409
  Serious: No
  Sender: FDA-Public Use
  Company Number: US-ALLERGAN-1853314US

PATIENT
  Age: 89 Year
  Sex: Female

DRUGS (6)
  1. OXYTROL [Suspect]
     Active Substance: OXYBUTYNIN
     Indication: HYPERTONIC BLADDER
     Dosage: 1 DF
     Route: 062
     Dates: start: 20190610, end: 20190614
  2. LORAZEPAM. [Concomitant]
     Active Substance: LORAZEPAM
  3. OXYTROL [Suspect]
     Active Substance: OXYBUTYNIN
     Dosage: 1 PATCH EVERY 4 DAYS
     Route: 062
     Dates: start: 201809, end: 201811
  4. SYNTHROID [Concomitant]
     Active Substance: LEVOTHYROXINE SODIUM
     Indication: HYPOTHYROIDISM
  5. PRANDIN [Concomitant]
     Active Substance: REPAGLINIDE
     Indication: TYPE 2 DIABETES MELLITUS
  6. UNSEPCIFIED MEDICATION FOR DIABETES [Concomitant]
     Indication: DIABETES MELLITUS

REACTIONS (4)
  - Application site pruritus [Not Recovered/Not Resolved]
  - Application site urticaria [Recovered/Resolved]
  - Application site pruritus [Recovered/Resolved]
  - Application site erythema [Not Recovered/Not Resolved]

NARRATIVE: CASE EVENT DATE: 201811
